FAERS Safety Report 9688234 (Version 1)
Quarter: 2013Q4

REPORT INFORMATION
  Report Type: Spontaneous
  Country: US (occurrence: None)
  Receive Date: 20131113
  Receipt Date: 20131113
  Transmission Date: 20140711
  Serious: Yes (Disabling, Other)
  Sender: FDA-Public Use
  Company Number: None

PATIENT
  Age: 29 Year
  Sex: Female
  Weight: 54.43 kg

DRUGS (1)
  1. VESTURA [Suspect]
     Dosage: DAILY BIRTH CONTROL PILL  ONCE DAILY  TAKEN BY MOUTH
     Route: 048
     Dates: start: 20131013, end: 20131026

REACTIONS (10)
  - Product substitution issue [None]
  - Muscle spasms [None]
  - Haemorrhage [None]
  - Dizziness [None]
  - Impaired work ability [None]
  - Feeling abnormal [None]
  - Acne [None]
  - Headache [None]
  - Alopecia [None]
  - Product substitution issue [None]
